FAERS Safety Report 5067996-9 (Version None)
Quarter: 2006Q3

REPORT INFORMATION
  Report Type: 
  Country: None (occurrence: None)
  Receive Date: 20060717
  Receipt Date: 20060131
  Transmission Date: 20061208
  Serious: Yes (Hospitalization)
  Sender: FDA-Public Use
  Company Number: 2006-01-2133

PATIENT
  Age: 73 Year
  Sex: Male
  Weight: 82.5547 kg

DRUGS (4)
  1. INTEGRILIN [Suspect]
     Dosage: SEE IMAGE
     Route: 042
     Dates: start: 20050509, end: 20050509
  2. INTEGRILIN [Suspect]
     Dosage: SEE IMAGE
     Route: 042
     Dates: start: 20050509, end: 20050510
  3. BIVALIRUDIN INJECTABLE SOLUTION [Suspect]
     Dosage: SEE IMAGE
     Route: 042
     Dates: start: 20050509, end: 20050509
  4. BIVALIRUDIN INJECTABLE SOLUTION [Suspect]
     Dosage: SEE IMAGE
     Route: 042
     Dates: start: 20050509, end: 20050510

REACTIONS (1)
  - CHEST PAIN [None]
